FAERS Safety Report 6654463-1 (Version None)
Quarter: 2010Q1

REPORT INFORMATION
  Report Type: 
  Country: None (occurrence: None)
  Receive Date: 20100326
  Receipt Date: 20100325
  Transmission Date: 20100710
  Serious: Yes (Other)
  Sender: FDA-Public Use
  Company Number: GXKR2010DE03485

PATIENT
  Age: 89 Year
  Sex: Male

DRUGS (1)
  1. ACETYLSALICYLIC ACID SRT [Suspect]
     Dosage: 100 MG, UNK
     Route: 048

REACTIONS (1)
  - HEMIPARESIS [None]
